FAERS Safety Report 6453355-0 (Version None)
Quarter: 2009Q4

REPORT INFORMATION
  Report Type: 
  Country: None (occurrence: None)
  Receive Date: 20091117
  Receipt Date: 20090929
  Transmission Date: 20100525
  Serious: Yes (Other)
  Sender: FDA-Public Use
  Company Number: 2009SP027811

PATIENT
  Age: 24 Year
  Sex: Female

DRUGS (2)
  1. NASONEX [Suspect]
     Indication: RHINITIS ALLERGIC
     Dosage: NAS
     Route: 045
  2. FLUANXOL (FLUPENTIXOL) [Concomitant]

REACTIONS (1)
  - DELUSION [None]
